FAERS Safety Report 16172211 (Version 1)
Quarter: 2019Q2

REPORT INFORMATION
  Report Type: Spontaneous
  Country: US (occurrence: US)
  Receive Date: 20190409
  Receipt Date: 20190409
  Transmission Date: 20190711
  Serious: Yes (Hospitalization, Other)
  Sender: FDA-Public Use
  Company Number: US-UCBSA-2019014934

PATIENT
  Age: 34 Year
  Sex: Male
  Weight: 100 kg

DRUGS (2)
  1. CIMZIA [Suspect]
     Active Substance: CERTOLIZUMAB PEGOL
     Indication: COLITIS ULCERATIVE
  2. CIMZIA [Suspect]
     Active Substance: CERTOLIZUMAB PEGOL
     Indication: RHEUMATOID ARTHRITIS
     Dosage: 400 MG, EV 30 DAYS
     Route: 058

REACTIONS (4)
  - Pulmonary embolism [Recovered/Resolved]
  - Thrombosis [Unknown]
  - Off label use [Unknown]
  - Bronchitis [Unknown]

NARRATIVE: CASE EVENT DATE: 201806
